FAERS Safety Report 10008155 (Version 1)
Quarter: 2014Q1

REPORT INFORMATION
  Report Type: Spontaneous
  Country: US (occurrence: US)
  Receive Date: 20140313
  Receipt Date: 20140313
  Transmission Date: 20141002
  Serious: Yes (Hospitalization, Other)
  Sender: FDA-Public Use
  Company Number: US-TEVA-468430USA

PATIENT
  Age: 60 Year
  Sex: Male

DRUGS (2)
  1. HALOPERIDOL [Suspect]
     Indication: AGGRESSION
     Route: 030
  2. LORAZEPAM [Concomitant]
     Indication: AGGRESSION
     Route: 030

REACTIONS (5)
  - Cardiotoxicity [Unknown]
  - Depressed level of consciousness [Unknown]
  - Atrial flutter [Unknown]
  - Hypoxia [Unknown]
  - Drug interaction [Unknown]
